FAERS Safety Report 4275929-8 (Version None)
Quarter: 2004Q1

REPORT INFORMATION
  Report Type: 
  Country: None (occurrence: None)
  Receive Date: 20040121
  Receipt Date: 20030320
  Transmission Date: 20041129
  Serious: No
  Sender: FDA-Public Use
  Company Number: US-GLAXOSMITHKLINE-A0401260A

PATIENT
  Age: 50 Year
  Sex: Female

DRUGS (2)
  1. VALTREX [Suspect]
     Dosage: 500MG PER DAY
     Route: 048
  2. ABREVA [Concomitant]

REACTIONS (4)
  - DRUG INEFFECTIVE [None]
  - INTENTIONAL OVERDOSE [None]
  - LIBIDO DECREASED [None]
  - PARAESTHESIA [None]
